FAERS Safety Report 7750189-1 (Version None)
Quarter: 2011Q3

REPORT INFORMATION
  Report Type: 
  Country: None (occurrence: None)
  Receive Date: 20110914
  Receipt Date: 20110914
  Transmission Date: 20111222
  Serious: Yes (Death, Hospitalization)
  Sender: FDA-Public Use
  Company Number: None

PATIENT
  Age: 60 Year
  Sex: Female
  Weight: 104 kg

DRUGS (1)
  1. CEFTRIAXONE [Suspect]
     Dosage: UNKNOWN
     Route: 030

REACTIONS (5)
  - HYPOXIC-ISCHAEMIC ENCEPHALOPATHY [None]
  - STATUS EPILEPTICUS [None]
  - PULSELESS ELECTRICAL ACTIVITY [None]
  - ANAPHYLACTIC SHOCK [None]
  - RESPIRATORY FAILURE [None]
